FAERS Safety Report 21347040 (Version 1)
Quarter: 2022Q3

REPORT INFORMATION
  Report Type: Spontaneous
  Country: JP (occurrence: JP)
  Receive Date: 20220918
  Receipt Date: 20220918
  Transmission Date: 20221027
  Serious: Yes (Death, Other)
  Sender: FDA-Public Use
  Company Number: JP-AMGEN-JPNSP2022158927

PATIENT

DRUGS (1)
  1. ROMOSOZUMAB [Suspect]
     Active Substance: ROMOSOZUMAB
     Indication: Osteoporosis
     Dosage: UNK
     Route: 065
     Dates: start: 2019

REACTIONS (7)
  - Neoplasm [Fatal]
  - Femur fracture [Unknown]
  - Embolism [Unknown]
  - Cerebral infarction [Unknown]
  - Fall [Unknown]
  - Hypocalcaemia [Unknown]
  - Rash [Unknown]
